FAERS Safety Report 8480380-0 (Version None)
Quarter: 2012Q3

REPORT INFORMATION
  Report Type: 
  Country: None (occurrence: None)
  Receive Date: 20120702
  Receipt Date: 20120626
  Transmission Date: 20120928
  Serious: Yes (Other)
  Sender: FDA-Public Use
  Company Number: GB-ROCHE-1079457

PATIENT
  Sex: Female

DRUGS (6)
  1. CALCIUM [Concomitant]
     Route: 065
  2. VENTOLIN [Concomitant]
     Route: 065
  3. FLUTICASONE PROPIONATE/SALMETEROL [Concomitant]
     Route: 065
  4. PREDNISOLONE [Concomitant]
     Route: 065
  5. XOLAIR [Suspect]
     Indication: ASTHMA
     Route: 065
     Dates: start: 20090901, end: 20090901
  6. XOLAIR [Suspect]
     Dates: start: 20111201, end: 20120101

REACTIONS (5)
  - DYSPNOEA [None]
  - WHEEZING [None]
  - MYALGIA [None]
  - ARTHRALGIA [None]
  - ASTHMA [None]
